FAERS Safety Report 19718694 (Version 1)
Quarter: 2021Q3

REPORT INFORMATION
  Report Type: Spontaneous
  Country: US (occurrence: US)
  Receive Date: 20210818
  Receipt Date: 20210818
  Transmission Date: 20211014
  Serious: No
  Sender: FDA-Public Use
  Company Number: US-SA-2021SA271377

PATIENT
  Sex: Male

DRUGS (3)
  1. COUMADIN [Concomitant]
     Active Substance: WARFARIN SODIUM
  2. INSULIN [Concomitant]
     Active Substance: INSULIN NOS
  3. ENOXAPARIN SODIUM. [Suspect]
     Active Substance: ENOXAPARIN SODIUM
     Dosage: DRUG STRUCTURE DOSAGE : 120 MG DRUG INTERVAL DOSAGE : UNKNOWN; FORM:SOLUTION

REACTIONS (1)
  - Product storage error [Unknown]
